FAERS Safety Report 8999069 (Version 1)
Quarter: 2013Q1

REPORT INFORMATION
  Report Type: Spontaneous
  Country: GB (occurrence: GB)
  Receive Date: 20130103
  Receipt Date: 20130103
  Transmission Date: 20140127
  Serious: Yes (Other)
  Sender: FDA-Public Use
  Company Number: PHFR2012GB005780

PATIENT
  Age: 52 Year
  Sex: Female

DRUGS (6)
  1. CLOZARIL [Suspect]
     Route: 048
     Dates: start: 20121003
  2. CLOZARIL [Suspect]
     Dosage: 275 MG, UNK
     Route: 048
  3. NITROFURANTOIN [Concomitant]
     Dosage: 400 MG, UNK
  4. TROSPIUM [Concomitant]
     Dosage: 20 MG, UNK
     Route: 048
  5. HYOSCINE HYDROBROMIDE [Concomitant]
     Dosage: 300 UG, UNK
     Route: 048
  6. SENNA [Concomitant]
     Dosage: UNK UKN, BID
     Route: 048

REACTIONS (4)
  - Urinary tract infection [Recovered/Resolved]
  - Body temperature increased [Unknown]
  - Leukopenia [Recovered/Resolved]
  - Neutropenia [Recovered/Resolved]
